FAERS Safety Report 10973602 (Version 2)
Quarter: 2015Q1

REPORT INFORMATION
  Report Type: Spontaneous
  Country: US (occurrence: None)
  Receive Date: 20150226
  Receipt Date: 20150226
  Transmission Date: 20150721
  Serious: No
  Sender: FDA-Public Use
  Company Number: TPA2009A03239

PATIENT
  Sex: Male

DRUGS (2)
  1. ULORIC [Suspect]
     Active Substance: FEBUXOSTAT
     Indication: GOUT
     Dosage: 1 IN 1 D
     Route: 048
     Dates: start: 200908
  2. ULORIC [Suspect]
     Active Substance: FEBUXOSTAT
     Dosage: 1 IN 1 D
     Route: 048
     Dates: start: 200908

REACTIONS (1)
  - Blood uric acid increased [None]

NARRATIVE: CASE EVENT DATE: 200909
